FAERS Safety Report 25939619 (Version 1)
Quarter: 2025Q4

REPORT INFORMATION
  Report Type: Report from Study
  Country: CA (occurrence: CA)
  Receive Date: 20251020
  Receipt Date: 20251020
  Transmission Date: 20260117
  Serious: Yes (Other)
  Sender: NORDIC PHARMA
  Company Number: CA-NORDICGR-064348

PATIENT
  Sex: Male

DRUGS (3)
  1. METHOTREXATE [Suspect]
     Active Substance: METHOTREXATE
     Indication: Product used for unknown indication
     Route: 065
  2. HULIO [Concomitant]
     Active Substance: ADALIMUMAB-FKJP
     Indication: Uveitis
     Route: 065
  3. HULIO [Concomitant]
     Active Substance: ADALIMUMAB-FKJP
     Indication: Uveitis
     Route: 058

REACTIONS (7)
  - Uveitis [Unknown]
  - Injection site discomfort [Unknown]
  - Therapy cessation [Unknown]
  - Discomfort [Unknown]
  - Treatment noncompliance [Unknown]
  - Injection site pain [Unknown]
  - Inappropriate schedule of product administration [Unknown]
